FAERS Safety Report 20035616 (Version 1)
Quarter: 2021Q4

REPORT INFORMATION
  Report Type: Spontaneous
  Country: US (occurrence: US)
  Receive Date: 20211104
  Receipt Date: 20211104
  Transmission Date: 20220304
  Serious: Yes (Hospitalization, Other)
  Sender: FDA-Public Use
  Company Number: US-TEVA-2021-US-1971422

PATIENT
  Age: 69 Year
  Sex: Female

DRUGS (2)
  1. HYDROCHLOROTHIAZIDE [Suspect]
     Active Substance: HYDROCHLOROTHIAZIDE
     Indication: Hypertension
     Route: 065
     Dates: start: 2020, end: 2020
  2. ZONEGRAN [Suspect]
     Active Substance: ZONISAMIDE
     Indication: Epilepsy
     Route: 065
     Dates: end: 2020

REACTIONS (13)
  - Drug abuser [Unknown]
  - Cardiopulmonary failure [Recovered/Resolved]
  - Injury [Recovered/Resolved]
  - Dizziness [Recovered/Resolved]
  - Fall [Unknown]
  - Orthostatic hypotension [Unknown]
  - Concussion [Unknown]
  - Neck pain [Unknown]
  - Dyskinesia [Unknown]
  - Hypertension [Not Recovered/Not Resolved]
  - Visual impairment [Recovered/Resolved]
  - Mouth haemorrhage [Recovered/Resolved]
  - Treatment noncompliance [Unknown]

NARRATIVE: CASE EVENT DATE: 20200101
